FAERS Safety Report 21560231 (Version 1)
Quarter: 2022Q4

REPORT INFORMATION
  Report Type: Spontaneous
  Country: DE (occurrence: DE)
  Receive Date: 20221107
  Receipt Date: 20221107
  Transmission Date: 20230112
  Serious: Yes (Hospitalization)
  Sender: FDA-Public Use
  Company Number: DE-ADRED-07330-01

PATIENT
  Age: 82 Year
  Sex: Male
  Weight: 90 kg

DRUGS (10)
  1. AMIODARONE [Suspect]
     Active Substance: AMIODARONE
     Indication: Product used for unknown indication
     Dosage: 200 MG BY SCHEME
     Route: 048
  2. TORSEMIDE [Suspect]
     Active Substance: TORSEMIDE
     Indication: Product used for unknown indication
     Dosage: 10 MG, 2-1-0-0, TABLET
     Route: 048
  3. METOPROLOL SUCCINATE [Suspect]
     Active Substance: METOPROLOL SUCCINATE
     Indication: Product used for unknown indication
     Dosage: 23.75 MG, 1-0-1-0, RETARD-TABLET
     Route: 048
  4. ENTRESTO [Suspect]
     Active Substance: SACUBITRIL\VALSARTAN
     Indication: Product used for unknown indication
     Dosage: 24|26 MG, 2-0-2-0, TABLET
     Route: 048
  5. EZETIMIBE\ROSUVASTATIN [Concomitant]
     Active Substance: EZETIMIBE\ROSUVASTATIN
     Dosage: 10|10 MG, 0-0-1-0, TABLET
     Route: 048
  6. ROSUVASTATIN [Concomitant]
     Active Substance: ROSUVASTATIN
     Dosage: 20 MG, 0-0-1-0, TABLET
     Route: 048
  7. POTASSIUM CITRATE [Concomitant]
     Active Substance: POTASSIUM CITRATE
     Dosage: 2157.3 MG/5.4G, 0-2-0-0, GRANULES
     Route: 048
  8. PANTOPRAZOLE SODIUM [Concomitant]
     Active Substance: PANTOPRAZOLE SODIUM
     Dosage: 40 MG, 1-0-0-0, TABLET
     Route: 048
  9. LEVOTHYROXINE SODIUM [Concomitant]
     Active Substance: LEVOTHYROXINE SODIUM
     Dosage: 25 ?G, 3-0-0-0, TABLET
     Route: 048
  10. ZOPICLONE [Concomitant]
     Active Substance: ZOPICLONE
     Dosage: 7.5 MG, 0-0-0-1, TABLET
     Route: 048

REACTIONS (10)
  - Urosepsis [Unknown]
  - Dysuria [Unknown]
  - Dehydration [Unknown]
  - Urinary hesitation [Unknown]
  - Fluid intake reduced [Unknown]
  - Abdominal pain [Unknown]
  - Acute kidney injury [Unknown]
  - Diarrhoea [Unknown]
  - Decreased appetite [Unknown]
  - Product monitoring error [Unknown]
